FAERS Safety Report 4507446-1 (Version None)
Quarter: 2004Q4

REPORT INFORMATION
  Report Type: 
  Country: None (occurrence: None)
  Receive Date: 20041118
  Receipt Date: 20041112
  Transmission Date: 20050328
  Serious: No
  Sender: FDA-Public Use
  Company Number: 2004UW23208

PATIENT
  Age: 59 Year
  Sex: Female
  Weight: 103 kg

DRUGS (12)
  1. PLENDIL [Suspect]
     Indication: HYPERTENSION
     Dosage: 5 MG BID
  2. PRILOSEC [Suspect]
     Dosage: 20 MG DAILY PO
     Route: 048
  3. ENBREL [Suspect]
     Indication: ANKYLOSING SPONDYLITIS
     Dosage: 25 MG 2 TIMES/WEEK
     Dates: start: 20020401
  4. DICLOFENAC SODIUM [Suspect]
     Indication: RHEUMATOID ARTHRITIS
     Dosage: 50 MG DAILY
  5. PREDNISOLONE [Suspect]
     Indication: RHEUMATOID ARTHRITIS
     Dosage: 5 MG DAILY
  6. BISOPROLOL W/HYDROCHLOROTHIAZIDE [Suspect]
     Indication: HYPERTENSION
  7. CALCIPRAT [Suspect]
     Dosage: 1 DF DAILY
  8. TORSEMIDE [Suspect]
     Indication: HYPERTENSION
     Dosage: 20 MG DAILY
  9. FOSAMAX [Suspect]
     Indication: OSTEOPOROSIS
     Dosage: 70 MG/WEEK
  10. AEQUAMEN [Suspect]
     Indication: TINNITUS
     Dosage: 12 MG BID
  11. AEQUAMEN [Suspect]
     Indication: VERTIGO
     Dosage: 12 MG BID
  12. METHOTREXATE [Suspect]

REACTIONS (5)
  - CONDITION AGGRAVATED [None]
  - DRUG INTERACTION [None]
  - GAMMA-GLUTAMYLTRANSFERASE INCREASED [None]
  - HEPATIC ENZYME INCREASED [None]
  - RHEUMATOID ARTHRITIS [None]
